FAERS Safety Report 6197956-6 (Version None)
Quarter: 2009Q2

REPORT INFORMATION
  Report Type: 
  Country: None (occurrence: None)
  Receive Date: 20090521
  Receipt Date: 20090514
  Transmission Date: 20091009
  Serious: Yes (Hospitalization, Other)
  Sender: FDA-Public Use
  Company Number: B0573975A

PATIENT
  Sex: Female

DRUGS (1)
  1. VALACYCLOVIR HCL [Suspect]
     Dosage: 500MG THREE TIMES PER DAY
     Route: 048
     Dates: start: 20081115, end: 20081121

REACTIONS (5)
  - BLISTER [None]
  - GENITAL HAEMORRHAGE [None]
  - MYELODYSPLASTIC SYNDROME [None]
  - PURPURA [None]
  - THROMBOCYTOPENIA [None]
